FAERS Safety Report 7035748-6 (Version None)
Quarter: 2010Q4

REPORT INFORMATION
  Report Type: 
  Country: None (occurrence: None)
  Receive Date: 20101008
  Receipt Date: 20100930
  Transmission Date: 20110411
  Serious: Yes (Death)
  Sender: FDA-Public Use
  Company Number: GB-JNJFOC-20101001198

PATIENT
  Sex: Female

DRUGS (5)
  1. TRAMADOL HYDROCHLORIDE [Suspect]
     Indication: ARTHRITIS
     Route: 048
  2. CHONDROITIN [Concomitant]
  3. FELODIPINE [Concomitant]
  4. PARACETAMOL [Concomitant]
  5. ROSUVASTATIN [Concomitant]

REACTIONS (1)
  - CARDIAC ARREST [None]
